FAERS Safety Report 5246990-9 (Version None)
Quarter: 2007Q1

REPORT INFORMATION
  Report Type: 
  Country: None (occurrence: None)
  Receive Date: 20070226
  Receipt Date: 20070220
  Transmission Date: 20070707
  Serious: Yes (Hospitalization)
  Sender: FDA-Public Use
  Company Number: US-GLAXOSMITHKLINE-B0453479A

PATIENT
  Age: 64 Year
  Sex: Female
  Weight: 75.8 kg

DRUGS (6)
  1. GW679769 [Suspect]
     Dates: start: 20061208, end: 20070105
  2. DEXAMETHASONE [Suspect]
     Dosage: 8MG PER DAY
     Route: 042
     Dates: start: 20061208, end: 20070105
  3. ONDANSETRON [Suspect]
     Dosage: 8MG PER DAY
     Route: 048
     Dates: start: 20061208, end: 20070105
  4. AVELOX [Concomitant]
     Indication: UPPER RESPIRATORY TRACT INFECTION
     Dosage: 400MG PER DAY
     Route: 048
     Dates: start: 20061226, end: 20070101
  5. DOXORUBICIN HCL [Concomitant]
     Indication: BREAST CANCER
     Dosage: 60MG CYCLIC
     Route: 042
     Dates: start: 20061208
  6. CYCLOPHOSPHAMIDE [Concomitant]
     Indication: BREAST CANCER
     Dosage: 600MGM2 CYCLIC
     Route: 042
     Dates: start: 20061208

REACTIONS (5)
  - CHILLS [None]
  - CONFUSIONAL STATE [None]
  - DIZZINESS [None]
  - DYSPNOEA [None]
  - TACHYCARDIA [None]
